FAERS Safety Report 23119304 (Version 1)
Quarter: 2023Q4

REPORT INFORMATION
  Report Type: Spontaneous
  Country: US (occurrence: US)
  Receive Date: 20231028
  Receipt Date: 20231028
  Transmission Date: 20240110
  Serious: No
  Sender: FDA-Public Use
  Company Number: US-TEVA-2023-US-2938774

PATIENT
  Sex: Female

DRUGS (3)
  1. AJOVY [Suspect]
     Active Substance: FREMANEZUMAB-VFRM
     Indication: Product used for unknown indication
     Route: 065
  2. AJOVY [Suspect]
     Active Substance: FREMANEZUMAB-VFRM
  3. UNSPECIFIED INGREDIENT [Suspect]
     Active Substance: UNSPECIFIED INGREDIENT
     Indication: Product used for unknown indication
     Route: 065

REACTIONS (8)
  - Restlessness [Not Recovered/Not Resolved]
  - Agitation [Not Recovered/Not Resolved]
  - Fatigue [Not Recovered/Not Resolved]
  - Nausea [Not Recovered/Not Resolved]
  - Retching [Not Recovered/Not Resolved]
  - Formication [Not Recovered/Not Resolved]
  - Eating disorder [Not Recovered/Not Resolved]
  - Wrong technique in device usage process [Unknown]

NARRATIVE: CASE EVENT DATE: 20231006
